FAERS Safety Report 5271602-8 (Version None)
Quarter: 2007Q1

REPORT INFORMATION
  Report Type: 
  Country: None (occurrence: None)
  Receive Date: 20061214
  Receipt Date: 20060830
  Transmission Date: 20070707
  Serious: Yes (Hospitalization)
  Sender: FDA-Public Use
  Company Number: 2006106904

PATIENT
  Age: 57 Year
  Sex: Male
  Weight: 161.0269 kg

DRUGS (1)
  1. BEXTRA [Suspect]
     Indication: ARTHRITIS
     Dosage: 10 MG (10 MG,1 IN 1 D)
     Dates: start: 20050114

REACTIONS (2)
  - CARDIAC FAILURE CONGESTIVE [None]
  - FURUNCLE [None]
